FAERS Safety Report 5810862-9 (Version None)
Quarter: 2008Q3

REPORT INFORMATION
  Report Type: 
  Country: None (occurrence: None)
  Receive Date: 20080715
  Receipt Date: 20080709
  Transmission Date: 20090109
  Serious: Yes (Disabling, Other)
  Sender: FDA-Public Use
  Company Number: US-ALLERGAN-0808552US

PATIENT
  Sex: Female

DRUGS (1)
  1. BOTOX [Suspect]
     Indication: MIGRAINE
     Dosage: UNK, SINGLE
     Dates: start: 20080201, end: 20080201

REACTIONS (5)
  - EYELID PTOSIS [None]
  - LACRIMATION INCREASED [None]
  - MIGRAINE [None]
  - OPHTHALMOPLEGIA [None]
  - VISION BLURRED [None]
